FAERS Safety Report 4945462-6 (Version None)
Quarter: 2006Q1

REPORT INFORMATION
  Report Type: 
  Country: None (occurrence: None)
  Receive Date: 20060316
  Receipt Date: 20060220
  Transmission Date: 20060701
  Serious: Yes (Hospitalization)
  Sender: FDA-Public Use
  Company Number: 108992ISR

PATIENT
  Age: 51 Year
  Sex: Female

DRUGS (19)
  1. RANITIDINE [Suspect]
     Route: 065
  2. HYDROCORTISONE [Suspect]
     Route: 065
  3. LEVOTHYROXINE SODIUM [Suspect]
     Route: 065
  4. CLOZAPINE [Suspect]
     Route: 065
  5. CIPROFLOXACIN HCL [Suspect]
     Route: 065
  6. VALPROIC ACID [Suspect]
     Route: 065
  7. FENTANYL [Suspect]
     Route: 065
  8. PARACETAMOL [Suspect]
     Route: 065
  9. FLUCONAZOLE [Suspect]
     Route: 065
  10. AMISULPRIDE [Concomitant]
     Route: 065
  11. LITHIUM [Concomitant]
     Route: 065
  12. LACTULOSE [Concomitant]
     Route: 065
  13. MIDAZOLAM [Concomitant]
     Route: 065
  14. PROPOFOL [Concomitant]
     Route: 065
  15. NOREPINEPHRINE [Concomitant]
     Route: 065
  16. POTASSIUM [Concomitant]
     Route: 065
  17. INSULIN [Concomitant]
     Route: 065
  18. HEPARIN [Concomitant]
     Route: 065
  19. ENOXAPARIN SODIUM [Concomitant]
     Route: 065

REACTIONS (1)
  - LOSS OF CONSCIOUSNESS [None]
